FAERS Safety Report 4498648-1 (Version None)
Quarter: 2004Q4

REPORT INFORMATION
  Report Type: 
  Country: None (occurrence: None)
  Receive Date: 20041108
  Receipt Date: 20041025
  Transmission Date: 20050328
  Serious: Yes (Death)
  Sender: FDA-Public Use
  Company Number: 2004240944US

PATIENT
  Age: 37 Year
  Sex: Male
  Weight: 114 kg

DRUGS (4)
  1. HEPARIN SODIUM INJECTION [Suspect]
     Indication: THROMBOSIS PROPHYLAXIS
     Dosage: 5000 U, TID, SUBCUTANEOUS
     Route: 058
  2. AMLODIPINE [Concomitant]
  3. CALCITRIOL [Concomitant]
  4. NORFLOXACIN [Concomitant]

REACTIONS (15)
  - BLOOD PRESSURE IMMEASURABLE [None]
  - DEEP VEIN THROMBOSIS [None]
  - DEHYDRATION [None]
  - DRUG INEFFECTIVE [None]
  - DYSPNOEA [None]
  - EMOTIONAL DISTRESS [None]
  - LOSS OF CONSCIOUSNESS [None]
  - NAUSEA [None]
  - OXYGEN SATURATION DECREASED [None]
  - PALLOR [None]
  - POSTOPERATIVE FEVER [None]
  - PULMONARY ARTERY THROMBOSIS [None]
  - PULMONARY EMBOLISM [None]
  - PULSE ABSENT [None]
  - TACHYPNOEA [None]
